FAERS Safety Report 4638854-6 (Version None)
Quarter: 2005Q2

REPORT INFORMATION
  Report Type: 
  Country: None (occurrence: None)
  Receive Date: 20050415
  Receipt Date: 20050415
  Transmission Date: 20051028
  Serious: Yes (Hospitalization)
  Sender: FDA-Public Use
  Company Number: None

PATIENT
  Age: 57 Year
  Sex: Male
  Weight: 97.0698 kg

DRUGS (1)
  1. FOSINOPRIL 20 MG QD [Suspect]
     Indication: CARDIAC FAILURE CONGESTIVE
     Dosage: 20 MG QD

REACTIONS (3)
  - CARDIAC FAILURE CONGESTIVE [None]
  - PALATAL OEDEMA [None]
  - SWELLING FACE [None]
